FAERS Safety Report 19490891 (Version 2)
Quarter: 2021Q3

REPORT INFORMATION
  Report Type: Spontaneous
  Country: DK (occurrence: DK)
  Receive Date: 20210705
  Receipt Date: 20210706
  Transmission Date: 20211014
  Serious: Yes (Hospitalization)
  Sender: FDA-Public Use
  Company Number: DK-TEVA-2021-DK-1928660

PATIENT
  Age: 6 Decade
  Sex: Male

DRUGS (11)
  1. BUPRENORPHINE/NALOXONE [Concomitant]
     Active Substance: BUPRENORPHINE\NALOXONE
     Indication: DRUG ABUSE
     Route: 065
  2. CLOZAPINE. [Interacting]
     Active Substance: CLOZAPINE
     Dosage: 300 MILLIGRAM DAILY;
     Route: 065
  3. CLOZAPINE. [Interacting]
     Active Substance: CLOZAPINE
     Dosage: 25 MILLIGRAM DAILY;
     Route: 065
  4. SODIUM?VALPROATE [Interacting]
     Active Substance: VALPROATE SODIUM
     Dosage: 900 MILLIGRAM DAILY;
     Route: 065
  5. SODIUM?VALPROATE [Interacting]
     Active Substance: VALPROATE SODIUM
     Indication: SCHIZOPHRENIA
     Dosage: 300 MILLIGRAM DAILY;
     Route: 065
  6. CLOZAPINE. [Suspect]
     Active Substance: CLOZAPINE
     Indication: SCHIZOPHRENIA
     Dosage: 12.5 MILLIGRAM DAILY;
     Route: 065
  7. LEVOTHYROXINE. [Concomitant]
     Active Substance: LEVOTHYROXINE
     Indication: MYXOEDEMA
     Dosage: 150?200 MICROGRAM
     Route: 065
  8. METOPROLOL. [Concomitant]
     Active Substance: METOPROLOL
     Indication: ATRIAL FIBRILLATION
     Dosage: 50 MILLIGRAM DAILY;
     Route: 065
  9. CLOZAPINE. [Interacting]
     Active Substance: CLOZAPINE
     Dosage: 550 MILLIGRAM DAILY;
     Route: 065
  10. CLOZAPINE. [Interacting]
     Active Substance: CLOZAPINE
     Dosage: 400 MILLIGRAM DAILY;
     Route: 065
  11. SODIUM?VALPROATE [Interacting]
     Active Substance: VALPROATE SODIUM
     Dosage: 1200 MILLIGRAM DAILY;
     Route: 065

REACTIONS (5)
  - Oropharyngeal pain [Recovering/Resolving]
  - Stupor [Recovering/Resolving]
  - Neutropenia [Recovering/Resolving]
  - Pyrexia [Recovering/Resolving]
  - Drug interaction [Unknown]
